FAERS Safety Report 4726976-0 (Version None)
Quarter: 2005Q3

REPORT INFORMATION
  Report Type: 
  Country: None (occurrence: None)
  Receive Date: 20050728
  Receipt Date: 20050721
  Transmission Date: 20060218
  Serious: Yes (Hospitalization)
  Sender: FDA-Public Use
  Company Number: US-BRISTOL-MYERS SQUIBB COMPANY-13046040

PATIENT
  Age: 54 Year
  Sex: Male

DRUGS (9)
  1. CISPLATIN [Suspect]
     Indication: METASTATIC GASTRIC CANCER
     Route: 042
     Dates: start: 20050503, end: 20050607
  2. IRINOTECAN HCL [Suspect]
     Indication: METASTATIC GASTRIC CANCER
     Route: 042
     Dates: start: 20050503, end: 20050607
  3. FLUOROURACIL [Suspect]
     Indication: METASTATIC GASTRIC CANCER
     Route: 042
     Dates: start: 20050503, end: 20050612
  4. LOMOTIL [Suspect]
  5. ZOFRAN [Concomitant]
  6. DECADRON [Concomitant]
  7. COMPAZINE [Concomitant]
  8. LEVAQUIN [Concomitant]
  9. SIMETHICONE [Concomitant]

REACTIONS (3)
  - DEHYDRATION [None]
  - DIARRHOEA [None]
  - ORAL INTAKE REDUCED [None]
